FAERS Safety Report 22061887 (Version 1)
Quarter: 2023Q1

REPORT INFORMATION
  Report Type: Spontaneous
  Country: MX (occurrence: MX)
  Receive Date: 20230304
  Receipt Date: 20230304
  Transmission Date: 20230418
  Serious: Yes (Other)
  Sender: FDA-Public Use
  Company Number: MX-Accord-302449

PATIENT
  Age: 74 Year
  Sex: Female

DRUGS (2)
  1. MITOMYCIN [Suspect]
     Active Substance: MITOMYCIN
     Indication: Trabeculectomy
     Dosage: 0.25 MG/ML AS A FINAL DOSE OF MMC.
  2. MITOMYCIN [Suspect]
     Active Substance: MITOMYCIN
     Indication: Trabeculectomy
     Dosage: SPONGES SOAKED WITH MMC (PREPARED AT 0.25 MG/ML), KEPT IN SUBCONJUNCTIVAL SPACE FOR 3 MINUTES

REACTIONS (4)
  - Scleral thinning [Recovered/Resolved]
  - Iridocele [Recovered/Resolved]
  - Scleromalacia [Recovered/Resolved]
  - Ocular hypertension [Recovered/Resolved]
